FAERS Safety Report 14155508 (Version 4)
Quarter: 2017Q4

REPORT INFORMATION
  Report Type: Spontaneous
  Country: FI (occurrence: FI)
  Receive Date: 20171103
  Receipt Date: 20171221
  Transmission Date: 20180321
  Serious: Yes (Other)
  Sender: FDA-Public Use
  Company Number: FI-ELI_LILLY_AND_COMPANY-FI201710010017

PATIENT
  Age: 38 Year
  Sex: Male

DRUGS (4)
  1. KETIPINOR [Concomitant]
     Active Substance: QUETIAPINE FUMARATE
     Indication: PRODUCT USED FOR UNKNOWN INDICATION
     Dosage: 200 MG, UNKNOWN
     Route: 065
  2. ZYPADHERA [Suspect]
     Active Substance: OLANZAPINE PAMOATE
     Indication: SCHIZOPHRENIA
     Dosage: 300 MG, UNKNOWN
     Route: 030
     Dates: start: 20130130
  3. ZYPADHERA [Suspect]
     Active Substance: OLANZAPINE PAMOATE
     Dosage: 405 MG, OTHER
     Route: 030
     Dates: start: 201303
  4. ZYPREXA [Suspect]
     Active Substance: OLANZAPINE
     Indication: PRODUCT USED FOR UNKNOWN INDICATION
     Dosage: 10 MG, EACH EVENING
     Route: 065

REACTIONS (7)
  - Heart rate increased [Recovered/Resolved]
  - Overdose [Unknown]
  - Feeling abnormal [Recovered/Resolved]
  - Depressed level of consciousness [Recovered/Resolved]
  - Blood pressure increased [Recovered/Resolved]
  - Post-injection delirium sedation syndrome [Recovered/Resolved]
  - Fatigue [Recovered/Resolved]

NARRATIVE: CASE EVENT DATE: 201303
